FAERS Safety Report 7342573-5 (Version None)
Quarter: 2011Q1

REPORT INFORMATION
  Report Type: 
  Country: None (occurrence: None)
  Receive Date: 20110310
  Receipt Date: 20110128
  Transmission Date: 20110831
  Serious: Yes (Other)
  Sender: FDA-Public Use
  Company Number: US-BAYER-2011-020922

PATIENT
  Sex: Female
  Weight: 99.773 kg

DRUGS (3)
  1. YAZ [Suspect]
     Indication: OVARIAN CYST
  2. YAZ [Suspect]
     Indication: CONTRACEPTION
     Dosage: UNK, QD
     Dates: start: 20060601, end: 20060801
  3. NSAID'S [Concomitant]

REACTIONS (3)
  - PAIN [None]
  - THROMBOTIC THROMBOCYTOPENIC PURPURA [None]
  - AMNESIA [None]
